FAERS Safety Report 6262161-1 (Version None)
Quarter: 2009Q3

REPORT INFORMATION
  Report Type: 
  Country: None (occurrence: None)
  Receive Date: 20090702
  Receipt Date: 20090518
  Transmission Date: 20100115
  Serious: No
  Sender: FDA-Public Use
  Company Number: 1000004143

PATIENT
  Age: 66 Year
  Sex: Female

DRUGS (7)
  1. BYSTOLIC [Suspect]
     Indication: HEART RATE IRREGULAR
     Dosage: 5 MG (5 MG, 1 IN 1 D), ORAL
     Route: 048
     Dates: start: 20080924, end: 20080928
  2. BYSTOLIC [Suspect]
     Indication: HYPERTENSION
     Dosage: 5 MG (5 MG, 1 IN 1 D), ORAL
     Route: 048
     Dates: start: 20080924, end: 20080928
  3. BYSTOLIC [Suspect]
     Indication: HEART RATE IRREGULAR
     Dosage: 5 MG (5 MG, 1 IN 1 D), ORAL
     Route: 048
     Dates: end: 20090516
  4. BYSTOLIC [Suspect]
     Indication: HYPERTENSION
     Dosage: 5 MG (5 MG, 1 IN 1 D), ORAL
     Route: 048
     Dates: end: 20090516
  5. VYTORIN [Concomitant]
  6. THYROID TAB [Concomitant]
  7. SPIRONOLACTONE [Concomitant]

REACTIONS (4)
  - ARTHRALGIA [None]
  - FATIGUE [None]
  - MYALGIA [None]
  - VISION BLURRED [None]
